FAERS Safety Report 6235731-4 (Version None)
Quarter: 2009Q2

REPORT INFORMATION
  Report Type: 
  Country: None (occurrence: None)
  Receive Date: 20090619
  Receipt Date: 20071205
  Transmission Date: 20091009
  Serious: Yes (Other)
  Sender: FDA-Public Use
  Company Number: US-ASTRAZENECA-2006UW26092

PATIENT
  Age: 18842 Day
  Sex: Male
  Weight: 66.7 kg

DRUGS (23)
  1. SEROQUEL [Suspect]
     Indication: DEPRESSION
     Route: 048
  2. SEROQUEL [Suspect]
     Indication: HALLUCINATION, AUDITORY
     Route: 048
  3. SEROQUEL [Suspect]
     Dosage: 25 TO 300 MG
     Route: 048
     Dates: start: 20021218
  4. SEROQUEL [Suspect]
     Dosage: 25 TO 300 MG
     Route: 048
     Dates: start: 20021218
  5. THORAZINE [Concomitant]
     Dates: start: 19960101
  6. ZYPREXA [Concomitant]
  7. PROZAC [Concomitant]
     Dates: start: 19900101
  8. CLOZAPINE [Concomitant]
  9. BENADRYL [Concomitant]
     Indication: SLEEP DISORDER
     Route: 048
     Dates: start: 20010913
  10. BENADRYL [Concomitant]
     Indication: ANOREXIA
     Route: 048
     Dates: start: 20010913
  11. BENADRYL [Concomitant]
     Indication: ANXIETY
     Route: 048
     Dates: start: 20010913
  12. KLONOPIN [Concomitant]
     Route: 048
     Dates: start: 20010913
  13. REMERON [Concomitant]
     Indication: DEPRESSED MOOD
     Route: 048
     Dates: start: 20030409
  14. GLIPIZIDE [Concomitant]
     Indication: DIABETES MELLITUS
     Route: 048
     Dates: start: 20060626
  15. PREVACID [Concomitant]
     Route: 048
     Dates: start: 20060626
  16. DOCUSATE SODIUM [Concomitant]
     Route: 048
     Dates: start: 20070626
  17. HUMULIN N [Concomitant]
     Indication: DIABETES MELLITUS
     Dosage: 70/30, 10 ML, 20 UNITS
     Dates: start: 20070626
  18. RIBAVIRIN [Concomitant]
     Route: 048
     Dates: start: 20070626
  19. LISINOPRIL [Concomitant]
     Indication: HYPERTENSION
     Dosage: 10 TO 20 MG
     Route: 048
     Dates: start: 20070626
  20. NORVASC [Concomitant]
     Indication: HYPERTENSION
     Route: 048
     Dates: start: 20070921
  21. PROTONIX [Concomitant]
     Route: 048
     Dates: start: 20070921
  22. LASIX [Concomitant]
     Route: 048
     Dates: start: 20080207
  23. DIAZEPAM [Concomitant]
     Indication: ANXIETY
     Route: 048
     Dates: start: 20080207

REACTIONS (5)
  - DIABETES MELLITUS [None]
  - DIABETES MELLITUS INADEQUATE CONTROL [None]
  - DIABETIC NEPHROPATHY [None]
  - INSULIN-REQUIRING TYPE 2 DIABETES MELLITUS [None]
  - RENAL FAILURE [None]
